FAERS Safety Report 19042416 (Version 1)
Quarter: 2021Q1

REPORT INFORMATION
  Report Type: Spontaneous
  Country: US (occurrence: US)
  Receive Date: 20210322
  Receipt Date: 20210322
  Transmission Date: 20210420
  Serious: No
  Sender: FDA-Public Use
  Company Number: None

PATIENT
  Age: 48 Year
  Sex: Female

DRUGS (1)
  1. GILENYA [Suspect]
     Active Substance: FINGOLIMOD HYDROCHLORIDE
     Dosage: OTHER
     Route: 048
     Dates: start: 20210322

REACTIONS (2)
  - Neoplasm malignant [None]
  - Hypertension [None]

NARRATIVE: CASE EVENT DATE: 20210322
